FAERS Safety Report 10238578 (Version 1)
Quarter: 2014Q2

REPORT INFORMATION
  Report Type: Spontaneous
  Country: GB (occurrence: GB)
  Receive Date: 20140616
  Receipt Date: 20140616
  Transmission Date: 20141212
  Serious: Yes (Other)
  Sender: FDA-Public Use
  Company Number: GB-PFIZER INC-2014159790

PATIENT
  Age: 39 Year
  Sex: Female
  Weight: 91.16 kg

DRUGS (6)
  1. SULFASALAZINE [Suspect]
     Indication: PSORIATIC ARTHROPATHY
     Dosage: 1000 MG, 2X/DAY
     Route: 048
     Dates: start: 20140428, end: 20140530
  2. CO-CODAMOL [Concomitant]
     Dosage: UNK
  3. METHOTREXATE [Concomitant]
     Dosage: UNK
  4. NAPROXEN [Concomitant]
     Dosage: UNK
  5. PENICILLIN NOS [Concomitant]
     Dosage: UNK
  6. SERTRALINE [Concomitant]
     Dosage: UNK

REACTIONS (2)
  - Parotid gland enlargement [Recovered/Resolved]
  - Rash pruritic [Recovering/Resolving]
